FAERS Safety Report 5092376-X (Version None)
Quarter: 2006Q3

REPORT INFORMATION
  Report Type: 
  Country: None (occurrence: None)
  Receive Date: 20060825
  Receipt Date: 20060809
  Transmission Date: 20061208
  Serious: Yes (Other)
  Sender: FDA-Public Use
  Company Number: US200608002970

PATIENT
  Age: 70 Year
  Sex: Female

DRUGS (15)
  1. FORTEO [Suspect]
     Indication: OSTEOPOROSIS
     Dates: start: 20060101
  2. FORTEO [Concomitant]
  3. FORTEO [Concomitant]
  4. ALEVE [Concomitant]
  5. SYNTHROID [Concomitant]
  6. ALLOPURINOL [Concomitant]
  7. AVANDIA [Concomitant]
  8. METFORMIN (METFORMIN) [Concomitant]
  9. TRIAMTERENE (TRIAMTERENE) [Concomitant]
  10. BENICAR /USA/ (OLMESARTAN MEDOXOMIL) [Concomitant]
  11. LIPITOR [Concomitant]
  12. ACIPHEX [Concomitant]
  13. GABAPENTIN [Concomitant]
  14. CALTRATE (CALCIUM CARBONATE) [Concomitant]
  15. ASPIRIN [Concomitant]

REACTIONS (9)
  - CONDITION AGGRAVATED [None]
  - FATIGUE [None]
  - GAIT DISTURBANCE [None]
  - HAEMOGLOBIN DECREASED [None]
  - MUSCULOSKELETAL PAIN [None]
  - OSTEOARTHRITIS [None]
  - PHARMACEUTICAL PRODUCT COMPLAINT [None]
  - RENAL IMPAIRMENT [None]
  - VITAMIN B12 DEFICIENCY [None]
